FAERS Safety Report 5378666-1 (Version None)
Quarter: 2007Q3

REPORT INFORMATION
  Report Type: 
  Country: None (occurrence: None)
  Receive Date: 20070702
  Receipt Date: 20070702
  Transmission Date: 20080115
  Serious: Yes (Life-Threatening)
  Sender: FDA-Public Use
  Company Number: None

PATIENT
  Age: 78 Year
  Sex: Male
  Weight: 59.4212 kg

DRUGS (2)
  1. ROSIGLITAZONE [Suspect]
     Indication: DIABETES MELLITUS
     Dosage: 8MG DAILY PO
     Route: 048
  2. GLIPIZIDE [Suspect]
     Dosage: 10MG BID PO
     Route: 048

REACTIONS (3)
  - BLOOD GLUCOSE DECREASED [None]
  - FALL [None]
  - LOSS OF CONSCIOUSNESS [None]
